FAERS Safety Report 12430558 (Version 1)
Quarter: 2016Q2

REPORT INFORMATION
  Report Type: Spontaneous
  Country: US (occurrence: US)
  Receive Date: 20160602
  Receipt Date: 20160602
  Transmission Date: 20160815
  Serious: No
  Sender: FDA-Public Use
  Company Number: US-ABBVIE-16P-163-1585154-00

PATIENT
  Sex: Male

DRUGS (2)
  1. DRONABINOL. [Suspect]
     Active Substance: DRONABINOL
     Indication: VOMITING
  2. DRONABINOL. [Suspect]
     Active Substance: DRONABINOL
     Indication: NAUSEA
     Route: 065

REACTIONS (2)
  - Drug effect delayed [Unknown]
  - Nausea [Unknown]
